FAERS Safety Report 7260614-0 (Version None)
Quarter: 2011Q1

REPORT INFORMATION
  Report Type: 
  Country: None (occurrence: None)
  Receive Date: 20110130
  Receipt Date: 20101109
  Transmission Date: 20110831
  Serious: No
  Sender: FDA-Public Use
  Company Number: US-ABBOTT-10P-163-0684681-00

PATIENT
  Sex: Female
  Weight: 57.658 kg

DRUGS (4)
  1. HUMIRA [Suspect]
     Route: 058
     Dates: start: 20090101, end: 20090301
  2. HUMIRA [Suspect]
     Indication: JUVENILE ARTHRITIS
     Route: 058
     Dates: start: 20080101, end: 20080301
  3. CELEXA [Concomitant]
     Indication: DEPRESSION
     Dates: start: 20000101
  4. HUMIRA [Suspect]
     Route: 058
     Dates: start: 20100801

REACTIONS (9)
  - PRE-ECLAMPSIA [None]
  - BLOOD PRESSURE INCREASED [None]
  - MIGRAINE [None]
  - HEADACHE [None]
  - PROTEIN URINE PRESENT [None]
  - ARTHRALGIA [None]
  - VOMITING [None]
  - ARTHRITIS [None]
  - SWELLING [None]
